FAERS Safety Report 11012473 (Version 1)
Quarter: 2015Q2

REPORT INFORMATION
  Report Type: Spontaneous
  Country: None (occurrence: None)
  Receive Date: 20150410
  Receipt Date: 20150410
  Transmission Date: 20150821
  Serious: Yes (Hospitalization)
  Sender: FDA-Public Use
  Company Number: None

PATIENT
  Age: 88 Year
  Sex: Male
  Weight: 79.38 kg

DRUGS (31)
  1. DOCUSATE [Concomitant]
     Active Substance: DOCUSATE
  2. FORFINASTERIDE [Concomitant]
  3. MINERAL OIL/PETROLATUM [Concomitant]
  4. OMEPRAZOLE. [Concomitant]
     Active Substance: OMEPRAZOLE
  5. SENNOSIDES. [Concomitant]
     Active Substance: SENNOSIDES
  6. NAPROXEN. [Suspect]
     Active Substance: NAPROXEN
     Indication: ARTHRALGIA
     Dates: start: 20140609, end: 20140630
  7. HYDROCORTISONE. [Concomitant]
     Active Substance: HYDROCORTISONE
  8. MULTIVITAMIN/MINERALS [Concomitant]
  9. SELENIUM SULFIDE. [Concomitant]
     Active Substance: SELENIUM SULFIDE
  10. BACITRACIN. [Concomitant]
     Active Substance: BACITRACIN
  11. CARBOXYMETHYLCELLULOSE [Concomitant]
     Active Substance: CARBOXYMETHYLCELLULOSE
  12. KETOCONAZOLE. [Concomitant]
     Active Substance: KETOCONAZOLE
  13. LISINOPRIL. [Concomitant]
     Active Substance: LISINOPRIL
  14. VITAMIN B12 [Concomitant]
     Active Substance: CYANOCOBALAMIN
  15. GABAPENTIN. [Concomitant]
     Active Substance: GABAPENTIN
  16. MULTIVIT/OPHTH AREDS/LUTE/ZEPAX [Concomitant]
  17. TAMSULOSIN [Concomitant]
     Active Substance: TAMSULOSIN
  18. ASPIRIN. [Concomitant]
     Active Substance: ASPIRIN
  19. NPH INSULIN [Concomitant]
     Active Substance: INSULIN BEEF
  20. POVIDONE IODINE [Concomitant]
     Active Substance: POVIDONE-IODINE
  21. BRIMONIDINE TARTRATE. [Concomitant]
     Active Substance: BRIMONIDINE TARTRATE
  22. DICYCLOMINE HCL [Concomitant]
     Active Substance: DICYCLOMINE HYDROCHLORIDE
  23. SILVER SULFADIAZINE. [Concomitant]
     Active Substance: SILVER SULFADIAZINE
  24. SIMVASTATIN. [Concomitant]
     Active Substance: SIMVASTATIN
  25. METOPROLOL SUCCINATE. [Concomitant]
     Active Substance: METOPROLOL SUCCINATE
  26. ASPIRIN. [Concomitant]
     Active Substance: ASPIRIN
  27. CIPROFLOXACIN. [Concomitant]
     Active Substance: CIPROFLOXACIN
  28. AMMONIUM LACTATE. [Concomitant]
     Active Substance: AMMONIUM LACTATE
  29. BARIUM SULFATE [Concomitant]
     Active Substance: BARIUM SULFATE
  30. CYANOCOBALAMIN. [Concomitant]
     Active Substance: CYANOCOBALAMIN
  31. METFORMIN HCL [Concomitant]
     Active Substance: METFORMIN HYDROCHLORIDE

REACTIONS (1)
  - Hyperkalaemia [None]

NARRATIVE: CASE EVENT DATE: 20140630
